FAERS Safety Report 18577114 (Version 5)
Quarter: 2022Q4

REPORT INFORMATION
  Report Type: Spontaneous
  Country: DE (occurrence: DE)
  Receive Date: 20201203
  Receipt Date: 20221117
  Transmission Date: 20230113
  Serious: Yes (Life-Threatening, Hospitalization, Other)
  Sender: FDA-Public Use
  Company Number: DE-002147023-NVSC2020DE297876

PATIENT
  Sex: Female
  Weight: 100 kg

DRUGS (103)
  1. DIAZEPAM [Suspect]
     Active Substance: DIAZEPAM
     Indication: Pain in extremity
     Route: 065
     Dates: start: 20150608
  2. DIAZEPAM [Suspect]
     Active Substance: DIAZEPAM
     Indication: Back pain
     Dosage: 1X 2.5, QD, 1X DAILY (EVENING)
     Route: 065
  3. DIAZEPAM [Suspect]
     Active Substance: DIAZEPAM
     Dosage: 10 MG1X 2.5, QD, 1X DAILY (EVENING)10 MG1X 2.5, QD, 1X DAILY (MORNING)
     Route: 065
  4. DICLOFENAC [Suspect]
     Active Substance: DICLOFENAC
     Indication: Product used for unknown indication
     Route: 065
  5. IBUPROFEN [Suspect]
     Active Substance: IBUPROFEN
     Indication: Product used for unknown indication
     Route: 065
  6. ACETAMINOPHEN [Suspect]
     Active Substance: ACETAMINOPHEN
     Indication: Product used for unknown indication
     Route: 065
  7. BLEOMYCIN [Suspect]
     Active Substance: BLEOMYCIN SULFATE
     Indication: Hodgkin^s disease
     Dosage: 25 MG/M2 (DAY 1 AND DAY 15)
     Route: 065
     Dates: start: 20151027, end: 201512
  8. BLEOMYCIN [Suspect]
     Active Substance: BLEOMYCIN SULFATE
     Dosage: 10 MG/M2, DAY 8
     Route: 065
     Dates: start: 20160120
  9. VALSARTAN [Suspect]
     Active Substance: VALSARTAN
     Indication: Hypertension
     Dosage: 80 UNK
     Route: 065
     Dates: start: 201407, end: 201410
  10. VALSARTAN [Suspect]
     Active Substance: VALSARTAN
     Dosage: 80 MG
     Route: 065
     Dates: start: 20140707
  11. VALSARTAN [Suspect]
     Active Substance: VALSARTAN
     Dosage: 160/ 12.5 MG
     Route: 065
     Dates: start: 201407, end: 201410
  12. VALSARTAN [Suspect]
     Active Substance: VALSARTAN
     Route: 065
     Dates: start: 20160804
  13. VALSARTAN [Suspect]
     Active Substance: VALSARTAN
     Route: 065
     Dates: start: 20160427
  14. VALSARTAN [Suspect]
     Active Substance: VALSARTAN
     Route: 065
     Dates: start: 20150102
  15. VALSARTAN [Suspect]
     Active Substance: VALSARTAN
     Route: 065
     Dates: start: 20150611
  16. VALSARTAN [Suspect]
     Active Substance: VALSARTAN
     Route: 065
     Dates: start: 20150415
  17. CYCLOPHOSPHAMIDE [Suspect]
     Active Substance: CYCLOPHOSPHAMIDE
     Indication: Hodgkin^s disease
     Dosage: 750 MG/M2
     Route: 065
     Dates: start: 20160113
  18. DACARBAZINE [Suspect]
     Active Substance: DACARBAZINE
     Indication: Hodgkin^s disease
     Dosage: 375 MG/M2, DAY 1 AND DAY 15
     Route: 065
     Dates: start: 20151027, end: 201512
  19. HYDROCHLOROTHIAZIDE\VALSARTAN [Suspect]
     Active Substance: HYDROCHLOROTHIAZIDE\VALSARTAN
     Indication: Hypertension
     Dosage: 160 MG/12.5 MG
     Route: 065
     Dates: start: 20160427
  20. HYDROCHLOROTHIAZIDE\VALSARTAN [Suspect]
     Active Substance: HYDROCHLOROTHIAZIDE\VALSARTAN
     Dosage: 160 MG/12.5 MG
     Route: 065
     Dates: start: 20150611
  21. HYDROCHLOROTHIAZIDE\VALSARTAN [Suspect]
     Active Substance: HYDROCHLOROTHIAZIDE\VALSARTAN
     Dosage: 160 MG/12.5 MG?1 DF, QD (IN MORNING 1-0-0)
     Route: 065
     Dates: start: 201407, end: 201407
  22. HYDROCHLOROTHIAZIDE\VALSARTAN [Suspect]
     Active Substance: HYDROCHLOROTHIAZIDE\VALSARTAN
     Dosage: 160 MG/12.5 MG
     Route: 065
     Dates: start: 20141014
  23. HYDROCHLOROTHIAZIDE\VALSARTAN [Suspect]
     Active Substance: HYDROCHLOROTHIAZIDE\VALSARTAN
     Dosage: 160 MG/12.5 MG
     Route: 065
     Dates: start: 20150102
  24. HYDROCHLOROTHIAZIDE\VALSARTAN [Suspect]
     Active Substance: HYDROCHLOROTHIAZIDE\VALSARTAN
     Dosage: 160 MG/12.5 MG?1 DF, QD (IN MORNING, 1-0-0)
     Route: 065
     Dates: start: 201410, end: 201704
  25. HYDROCHLOROTHIAZIDE\VALSARTAN [Suspect]
     Active Substance: HYDROCHLOROTHIAZIDE\VALSARTAN
     Dosage: 160 MG/12.5 MG
     Route: 065
     Dates: start: 20140707
  26. HYDROCHLOROTHIAZIDE\VALSARTAN [Suspect]
     Active Substance: HYDROCHLOROTHIAZIDE\VALSARTAN
     Dosage: 160 MG/12.5 MG
     Route: 065
     Dates: start: 20170112
  27. HYDROCHLOROTHIAZIDE\VALSARTAN [Suspect]
     Active Substance: HYDROCHLOROTHIAZIDE\VALSARTAN
     Dosage: 160 MG/12.5 MG
     Route: 065
     Dates: start: 20160804
  28. HYDROCHLOROTHIAZIDE\VALSARTAN [Suspect]
     Active Substance: HYDROCHLOROTHIAZIDE\VALSARTAN
     Dosage: 160 MG/12.5 MG
     Route: 065
     Dates: start: 20150415
  29. DOXORUBICIN [Suspect]
     Active Substance: DOXORUBICIN
     Indication: Hodgkin^s disease
     Dosage: 25 MG/M2 (DAY 1 AND DAY 15)
     Route: 065
     Dates: start: 20151027, end: 201512
  30. DOXORUBICIN [Suspect]
     Active Substance: DOXORUBICIN
     Dosage: 25 MG/M2 (DAY 1)
     Route: 065
     Dates: start: 20160113
  31. PROCARBAZINE [Suspect]
     Active Substance: PROCARBAZINE
     Indication: Hodgkin^s disease
     Dosage: 100 MG/M2 (200 MG), DAY 1-7, DAILY
     Route: 065
     Dates: start: 20190113, end: 20190119
  32. VINBLASTINE [Suspect]
     Active Substance: VINBLASTINE
     Indication: Hodgkin^s disease
     Dosage: 6 MG/M2, (DAY 1 AND DAY 15)
     Route: 065
     Dates: start: 20151027, end: 201512
  33. VINCRISTINE [Suspect]
     Active Substance: VINCRISTINE
     Indication: Hodgkin^s disease
     Dosage: 2 MG ABSOLUTE, DAY 8
     Route: 065
     Dates: start: 20160120
  34. HYDROCHLOROTHIAZIDE\VALSARTAN [Suspect]
     Active Substance: HYDROCHLOROTHIAZIDE\VALSARTAN
     Indication: Hypertension
     Dosage: UNK
     Route: 065
     Dates: start: 20140707, end: 201410
  35. ASPIRIN [Suspect]
     Active Substance: ASPIRIN
     Indication: Product used for unknown indication
     Route: 065
  36. ETOPOSIDE [Suspect]
     Active Substance: ETOPOSIDE
     Indication: Hodgkin^s disease
     Dosage: 100 MG/M2, DAY 1-3
     Route: 065
     Dates: start: 20160113
  37. LENOGRASTIM [Suspect]
     Active Substance: LENOGRASTIM
     Indication: Neutropenia
     Dosage: 1X 34, QD, 1X DAILY.
     Route: 065
     Dates: start: 20160203, end: 20160205
  38. LENOGRASTIM [Suspect]
     Active Substance: LENOGRASTIM
     Indication: Neutropenia
     Dosage: 1X 34, QD, 1X DAILY.
     Route: 065
     Dates: start: 20160120, end: 201601
  39. LENOGRASTIM [Suspect]
     Active Substance: LENOGRASTIM
     Route: 065
     Dates: start: 201511, end: 201511
  40. LENOGRASTIM [Suspect]
     Active Substance: LENOGRASTIM
     Route: 065
     Dates: start: 201511
  41. NEULASTA [Suspect]
     Active Substance: PEGFILGRASTIM
     Indication: Neutropenia
     Dosage: UNK
     Route: 058
     Dates: start: 20151212, end: 20151212
  42. PREDNISOLONE [Suspect]
     Active Substance: PREDNISOLONE
     Indication: Hodgkin^s disease
     Dosage: 40 MG MG/M2 (80 MG), DAY 1-14, DAILY
     Route: 065
     Dates: start: 20160113, end: 20160126
  43. BACLOFEN [Suspect]
     Active Substance: BACLOFEN
     Indication: Product used for unknown indication
     Dosage: 200 UG, VIA PUMP
     Route: 065
  44. BACLOFEN [Suspect]
     Active Substance: BACLOFEN
     Dosage: 200 UG, VIA PUMP
     Route: 058
  45. BACLOFEN [Suspect]
     Active Substance: BACLOFEN
     Route: 065
     Dates: start: 20180102
  46. BACLOFEN [Suspect]
     Active Substance: BACLOFEN
     Dosage: 200 MICROGRAM /20 MG VIA PUMP
     Route: 058
  47. BACLOFEN [Suspect]
     Active Substance: BACLOFEN
     Route: 048
     Dates: start: 20170704, end: 20170712
  48. BACLOFEN [Suspect]
     Active Substance: BACLOFEN
     Route: 065
     Dates: start: 20180228
  49. PIRITRAMIDE [Suspect]
     Active Substance: PIRITRAMIDE
     Indication: Pain in extremity
     Route: 065
     Dates: start: 20150608
  50. PIRITRAMIDE [Suspect]
     Active Substance: PIRITRAMIDE
     Indication: Back pain
  51. HYDROCHLOROTHIAZIDE\VALSARTAN [Suspect]
     Active Substance: HYDROCHLOROTHIAZIDE\VALSARTAN
     Indication: Product used for unknown indication
     Route: 065
     Dates: start: 20170112
  52. HYDROCHLOROTHIAZIDE\VALSARTAN [Suspect]
     Active Substance: HYDROCHLOROTHIAZIDE\VALSARTAN
     Dosage: 160/ 12.5 MG
     Route: 065
     Dates: start: 201407, end: 201807
  53. HYDROCHLOROTHIAZIDE\VALSARTAN [Suspect]
     Active Substance: HYDROCHLOROTHIAZIDE\VALSARTAN
     Route: 065
     Dates: start: 20140707
  54. HYDROCHLOROTHIAZIDE\VALSARTAN [Suspect]
     Active Substance: HYDROCHLOROTHIAZIDE\VALSARTAN
     Route: 065
     Dates: start: 20140707, end: 201410
  55. DOXORUBICIN HYDROCHLORIDE [Suspect]
     Active Substance: DOXORUBICIN HYDROCHLORIDE
     Indication: Hodgkin^s disease
     Dosage: DAY 1 AND 15
     Route: 065
     Dates: start: 20151027, end: 201512
  56. DOXORUBICIN HYDROCHLORIDE [Suspect]
     Active Substance: DOXORUBICIN HYDROCHLORIDE
     Dosage: DAY 1
     Route: 065
     Dates: start: 20160113
  57. LYRICA [Concomitant]
     Active Substance: PREGABALIN
     Indication: Product used for unknown indication
     Dosage: 2X 75, 1X DAILY (MORNING), START DATE: FEB/MAR 2016
     Route: 065
     Dates: start: 2016
  58. LYRICA [Concomitant]
     Active Substance: PREGABALIN
     Dosage: 1X 150, 2X DAILY (MORNING AND EVENING)
     Route: 065
  59. LYRICA [Concomitant]
     Active Substance: PREGABALIN
     Dosage: 1X75, 1X DAILY (EVENING), START DATE:  FEB/MAR 2016
     Route: 065
     Dates: start: 2016
  60. LYRICA [Concomitant]
     Active Substance: PREGABALIN
     Dosage: 1X 150, 1X, STOP DATE:  FEB/MAR 2016
     Route: 065
     Dates: end: 2016
  61. LYRICA [Concomitant]
     Active Substance: PREGABALIN
     Dosage: 1X 150, 2X DAILY (MORNING AND EVENING)
     Route: 065
     Dates: start: 2016
  62. LYRICA [Concomitant]
     Active Substance: PREGABALIN
     Dosage: 2X 75, 1X DAILY (MORNING), START DATE: FEB/MAR 2016
     Route: 065
     Dates: start: 2016
  63. MOTILIUM [Concomitant]
     Active Substance: DOMPERIDONE
     Indication: Product used for unknown indication
     Dosage: 1 DF,SACHET, 4X DAILY
     Route: 065
  64. MOTILIUM [Concomitant]
     Active Substance: DOMPERIDONE
     Dosage: 10 MG, ONCE IN THE MORNING, NOON AND EVENING
     Route: 048
  65. MORPHINE [Concomitant]
     Active Substance: MORPHINE
     Indication: Pain
     Dosage: UNK, VIA PUMP
     Route: 065
  66. SULFAMETHOXAZOLE\TRIMETHOPRIM [Concomitant]
     Active Substance: SULFAMETHOXAZOLE\TRIMETHOPRIM
     Indication: Pneumonia
     Dosage: 1 DF, BID, DF (ON (SATURDAY AND SUNDAY)
     Route: 065
  67. HYDROCHLOROTHIAZIDE\VALSARTAN [Concomitant]
     Active Substance: HYDROCHLOROTHIAZIDE\VALSARTAN
     Indication: Hypertension
     Dosage: UNK
     Route: 065
     Dates: start: 20170411
  68. HYDROCHLOROTHIAZIDE\VALSARTAN [Concomitant]
     Active Substance: HYDROCHLOROTHIAZIDE\VALSARTAN
     Dosage: UNK
     Route: 065
     Dates: start: 201704, end: 2017
  69. HYDROCHLOROTHIAZIDE\VALSARTAN [Concomitant]
     Active Substance: HYDROCHLOROTHIAZIDE\VALSARTAN
     Dosage: UNK
     Route: 065
     Dates: start: 20170725
  70. CLORAZEPATE DIPOTASSIUM [Concomitant]
     Active Substance: CLORAZEPATE DIPOTASSIUM
     Indication: Product used for unknown indication
     Dosage: 1X 15 MG, QD, 1X DAILY (EVENING OR NIGHT)
     Route: 065
  71. CLORAZEPATE DIPOTASSIUM [Concomitant]
     Active Substance: CLORAZEPATE DIPOTASSIUM
     Dosage: 1X 10 MG, BID, 2X DAILY (MORNING AND EVENING)
     Route: 065
  72. CLORAZEPATE DIPOTASSIUM [Concomitant]
     Active Substance: CLORAZEPATE DIPOTASSIUM
     Dosage: 1X 10 MG, QD, 1X DAILY (MORNING)
     Route: 065
  73. CLORAZEPATE DIPOTASSIUM [Concomitant]
     Active Substance: CLORAZEPATE DIPOTASSIUM
     Dosage: 1X 10 MG, BID, 2X DAILY (MORNING AND EVENING)
  74. MOVICOL [Concomitant]
     Active Substance: POLYETHYLENE GLYCOL 3350\POTASSIUM CHLORIDE\SODIUM BICARBONATE\SODIUM CHLORIDE
     Indication: Product used for unknown indication
     Dosage: 1 DF, SACHET, 1X IF NEEDED
     Route: 065
  75. MOVICOL [Concomitant]
     Active Substance: POLYETHYLENE GLYCOL 3350\POTASSIUM CHLORIDE\SODIUM BICARBONATE\SODIUM CHLORIDE
     Dosage: SACHET
  76. MOVICOL [Concomitant]
     Active Substance: POLYETHYLENE GLYCOL 3350\POTASSIUM CHLORIDE\SODIUM BICARBONATE\SODIUM CHLORIDE
     Dosage: UNK, SACHET, 1X DAILY (MORNING)
  77. VALSARTAN [Concomitant]
     Active Substance: VALSARTAN
     Indication: Hypertension
     Dosage: UNK
     Route: 065
     Dates: start: 20130124
  78. VALSARTAN [Concomitant]
     Active Substance: VALSARTAN
     Dosage: UNK
     Route: 065
     Dates: start: 201301
  79. PANTOZOL [Concomitant]
     Active Substance: PANTOPRAZOLE SODIUM
     Indication: Product used for unknown indication
     Dosage: 1X 40, 1X DAILY (MORNING)
     Route: 065
  80. PANTOZOL [Concomitant]
     Active Substance: PANTOPRAZOLE SODIUM
     Dosage: 1X 40, 1X DAILY (EVENING)
     Route: 065
  81. CITALOPRAM [Concomitant]
     Active Substance: CITALOPRAM HYDROBROMIDE
     Indication: Product used for unknown indication
     Dosage: 1X 20, 1X DAILY (MORNING)
     Route: 065
  82. HYDROMORPHONE [Concomitant]
     Active Substance: HYDROMORPHONE
     Indication: Product used for unknown indication
     Dosage: 1X 8MG, BID
     Route: 065
     Dates: start: 201511, end: 201511
  83. HYDROMORPHONE [Concomitant]
     Active Substance: HYDROMORPHONE
     Dates: end: 201511
  84. DIAZEPAM [Concomitant]
     Active Substance: DIAZEPAM
     Indication: Product used for unknown indication
     Dosage: 1X 2.5, QD, 1X DAILY (EVENING)
     Route: 065
  85. DIAZEPAM [Concomitant]
     Active Substance: DIAZEPAM
     Dosage: 1X 2.5, QD, 1X DAILY (MORNING)
     Route: 065
  86. SULFAMETHOXAZOLE\TRIMETHOPRIM [Concomitant]
     Active Substance: SULFAMETHOXAZOLE\TRIMETHOPRIM
     Indication: Product used for unknown indication
  87. BACLOFEN [Concomitant]
     Active Substance: BACLOFEN
     Indication: Product used for unknown indication
     Dosage: VIA PUMP
  88. BACLOFEN [Concomitant]
     Active Substance: BACLOFEN
     Dosage: UNK (25/20 MG IN MORNING, 20 MG IN NOON, 20 MG IN EVENING
  89. BACLOFEN [Concomitant]
     Active Substance: BACLOFEN
     Dates: end: 2015
  90. BACLOFEN [Concomitant]
     Active Substance: BACLOFEN
     Dates: start: 20170704, end: 20170712
  91. BACLOFEN [Concomitant]
     Active Substance: BACLOFEN
     Dosage: 25 MG (1-1-1-1 ONCE IN MORNING, NOON, AFTERNOON, EVENING)
     Route: 048
     Dates: start: 20180102
  92. BACLOFEN [Concomitant]
     Active Substance: BACLOFEN
     Dosage: VIA PUMP
     Dates: start: 2015, end: 2015
  93. BACLOFEN [Concomitant]
     Active Substance: BACLOFEN
     Dosage: VIA PUMP
     Dates: start: 2015
  94. CLONIDINE [Concomitant]
     Active Substance: CLONIDINE
     Indication: Product used for unknown indication
     Dosage: UNK, BID (1X0.5 MG)
  95. CLONIDINE [Concomitant]
     Active Substance: CLONIDINE
     Dosage: 0.15 UG, BID (1-0-1 IN MORNINGA AND EVENING)
  96. LEVOTHYROXINE [Concomitant]
     Active Substance: LEVOTHYROXINE
     Indication: Product used for unknown indication
  97. ENOXAPARIN SODIUM [Concomitant]
     Active Substance: ENOXAPARIN SODIUM
     Indication: Thrombosis prophylaxis
     Dosage: 40 MG, QD
     Route: 058
  98. CHOLECALCIFEROL [Concomitant]
     Active Substance: CHOLECALCIFEROL
     Indication: Product used for unknown indication
     Dosage: 100 MG, (IN THE MORNING)
     Route: 048
  99. PANTOPRAZOLE SODIUM [Concomitant]
     Active Substance: PANTOPRAZOLE SODIUM
     Indication: Product used for unknown indication
     Dosage: 40 MG, QD
  100. PANTOPRAZOLE SODIUM [Concomitant]
     Active Substance: PANTOPRAZOLE SODIUM
     Dosage: 1X 40, 1X DAILY (MORNING)
  101. PANTOPRAZOLE SODIUM [Concomitant]
     Active Substance: PANTOPRAZOLE SODIUM
     Dosage: 1X 40, 1X DAILY (EVENING)
  102. MOVICOLON [Concomitant]
     Active Substance: POLYETHYLENE GLYCOL 3350\POTASSIUM CHLORIDE\SODIUM BICARBONATE\SODIUM CHLORIDE
     Indication: Product used for unknown indication
     Dosage: SACHET
  103. MOVICOLON [Concomitant]
     Active Substance: POLYETHYLENE GLYCOL 3350\POTASSIUM CHLORIDE\SODIUM BICARBONATE\SODIUM CHLORIDE
     Dosage: UNK, SACHET, 1X DAILY (MORNING)

REACTIONS (73)
  - Splenomegaly [Unknown]
  - Back pain [Recovering/Resolving]
  - Pain in extremity [Unknown]
  - Candida infection [Unknown]
  - Red blood cell sedimentation rate increased [Unknown]
  - General physical health deterioration [Unknown]
  - Spinal pain [Unknown]
  - Urinary tract infection [Unknown]
  - Device malfunction [Unknown]
  - Pulmonary congestion [Unknown]
  - Hodgkin^s disease [Unknown]
  - Hyperpyrexia [Unknown]
  - Cough [Unknown]
  - Dysphagia [Unknown]
  - Bone pain [Recovering/Resolving]
  - Pain [Recovering/Resolving]
  - Tissue infiltration [Unknown]
  - Hypothyroidism [Unknown]
  - Basal ganglion degeneration [Unknown]
  - Intervertebral disc disorder [Unknown]
  - Muscle spasticity [Unknown]
  - Tenderness [Unknown]
  - Respiratory failure [Unknown]
  - Inflammation [Recovering/Resolving]
  - Psychogenic seizure [Unknown]
  - Monoplegia [Unknown]
  - Sepsis [Unknown]
  - Hypokinesia [Not Recovered/Not Resolved]
  - Anaesthesia [Unknown]
  - Loss of consciousness [Unknown]
  - Haematoma [Unknown]
  - Fatigue [Unknown]
  - Speech disorder [Recovering/Resolving]
  - Nausea [Recovering/Resolving]
  - Vomiting [Recovering/Resolving]
  - Lymphadenopathy [Recovering/Resolving]
  - Pneumonia [Unknown]
  - Klebsiella infection [Unknown]
  - Dyspnoea [Recovering/Resolving]
  - Viral infection [Unknown]
  - Drug abuse [Unknown]
  - Somnolence [Recovering/Resolving]
  - Tremor [Unknown]
  - Tachycardia [Unknown]
  - Headache [Unknown]
  - Pyrexia [Recovered/Resolved]
  - Neutropenia [Recovering/Resolving]
  - Hepatic steatosis [Unknown]
  - Arthralgia [Unknown]
  - Lung disorder [Unknown]
  - Drug intolerance [Unknown]
  - Obesity [Unknown]
  - Renal cyst [Unknown]
  - Uterine enlargement [Unknown]
  - Hyperventilation [Unknown]
  - Myalgia [Unknown]
  - Inguinal hernia [Unknown]
  - Sleep disorder [Unknown]
  - Fall [Recovered/Resolved]
  - Fall [Unknown]
  - Sleep apnoea syndrome [Unknown]
  - Dysaesthesia [Recovering/Resolving]
  - Abdominal tenderness [Unknown]
  - Pyrexia [Recovered/Resolved]
  - Hypoaesthesia [Unknown]
  - Neurological decompensation [Recovering/Resolving]
  - Back pain [Recovering/Resolving]
  - Hyperhidrosis [Unknown]
  - Drug hypersensitivity [Unknown]
  - Dizziness [Unknown]
  - Hypochromic anaemia [Unknown]
  - Product use in unapproved indication [Unknown]
  - Off label use [Unknown]

NARRATIVE: CASE EVENT DATE: 20150608
